FAERS Safety Report 16511280 (Version 1)
Quarter: 2019Q3

REPORT INFORMATION
  Report Type: Spontaneous
  Country: DE (occurrence: DE)
  Receive Date: 20190702
  Receipt Date: 20190702
  Transmission Date: 20191004
  Serious: Yes (Other)
  Sender: FDA-Public Use
  Company Number: PHHY2019DE150746

PATIENT
  Sex: Female

DRUGS (1)
  1. GILENYA [Suspect]
     Active Substance: FINGOLIMOD HYDROCHLORIDE
     Indication: PRODUCT USED FOR UNKNOWN INDICATION
     Dosage: 1 DF, QD
     Route: 065

REACTIONS (6)
  - Product dose omission [Recovered/Resolved]
  - Concomitant disease aggravated [Unknown]
  - Aphasia [Unknown]
  - Cerebrovascular accident [Unknown]
  - Migraine with aura [Unknown]
  - Attention deficit/hyperactivity disorder [Unknown]

NARRATIVE: CASE EVENT DATE: 201906
